FAERS Safety Report 21549134 (Version 1)
Quarter: 2022Q4

REPORT INFORMATION
  Report Type: Spontaneous
  Country: US (occurrence: None)
  Receive Date: 20221102
  Receipt Date: 20221102
  Transmission Date: 20230112
  Serious: Yes (Life-Threatening, Disabling)
  Sender: FDA-Public Use
  Company Number: None

PATIENT
  Age: 34 Year
  Sex: Male
  Weight: 75 kg

DRUGS (1)
  1. INVEGA SUSTENNA [Suspect]
     Active Substance: PALIPERIDONE PALMITATE
     Indication: Schizophrenia

REACTIONS (15)
  - Breast enlargement [None]
  - Weight increased [None]
  - Tardive dyskinesia [None]
  - Paralysis [None]
  - Gait disturbance [None]
  - Fall [None]
  - Dyspnoea [None]
  - Eye swelling [None]
  - Electromyogram abnormal [None]
  - Hallucination, auditory [None]
  - Soliloquy [None]
  - Near death experience [None]
  - Visual impairment [None]
  - Lip disorder [None]
  - Tongue paralysis [None]

NARRATIVE: CASE EVENT DATE: 20210501
